FAERS Safety Report 12450057 (Version 1)
Quarter: 2016Q2

REPORT INFORMATION
  Report Type: Spontaneous
  Country: ES (occurrence: ES)
  Receive Date: 20160609
  Receipt Date: 20160609
  Transmission Date: 20160815
  Serious: Yes (Hospitalization)
  Sender: FDA-Public Use
  Company Number: ES-ABBVIE-16K-144-1643838-00

PATIENT
  Age: 73 Year
  Sex: Male

DRUGS (9)
  1. PANTECTA [Concomitant]
     Active Substance: PANTOPRAZOLE SODIUM
     Indication: PRODUCT USED FOR UNKNOWN INDICATION
     Route: 048
     Dates: start: 20141209
  2. FENTANYL. [Concomitant]
     Active Substance: FENTANYL
     Indication: PAIN
     Route: 061
     Dates: start: 20150115
  3. VALIUM [Concomitant]
     Active Substance: DIAZEPAM
     Indication: NERVOUSNESS
     Route: 048
     Dates: start: 20141210
  4. CITALOPRAM [Concomitant]
     Active Substance: CITALOPRAM HYDROBROMIDE
     Indication: DEPRESSION
     Route: 048
     Dates: start: 20150916
  5. NAPROXEN SODIUM. [Concomitant]
     Active Substance: NAPROXEN SODIUM
     Indication: PRODUCT USED FOR UNKNOWN INDICATION
     Route: 048
     Dates: start: 20150114
  6. PARACETAMOL [Concomitant]
     Active Substance: ACETAMINOPHEN
     Indication: PRODUCT USED FOR UNKNOWN INDICATION
     Route: 048
     Dates: start: 20150416
  7. CYANOCOBALAMIN. [Concomitant]
     Active Substance: CYANOCOBALAMIN
     Indication: ANAEMIA
     Route: 030
     Dates: start: 20141209
  8. PROLIA [Concomitant]
     Active Substance: DENOSUMAB
     Indication: OSTEOPOROSIS
     Route: 058
     Dates: start: 20141112
  9. HUMIRA [Suspect]
     Active Substance: ADALIMUMAB
     Indication: CROHN^S DISEASE
     Route: 058
     Dates: start: 20151203

REACTIONS (2)
  - Delirium [Unknown]
  - Aggression [Unknown]

NARRATIVE: CASE EVENT DATE: 20160104
